FAERS Safety Report 9729907 (Version 1)
Quarter: 2013Q4

REPORT INFORMATION
  Report Type: Spontaneous
  Country: IE (occurrence: IE)
  Receive Date: 20131204
  Receipt Date: 20131204
  Transmission Date: 20140711
  Serious: Yes (Other)
  Sender: FDA-Public Use
  Company Number: IE-009507513-1312IRL000460

PATIENT
  Age: 19 Year
  Sex: Female

DRUGS (3)
  1. IMPLANON [Suspect]
     Dosage: 1 DF
     Route: 059
     Dates: start: 20130128
  2. BECLASONE [Concomitant]
  3. VENTOLIN (ALBUTEROL) [Concomitant]

REACTIONS (1)
  - Ligament operation [Unknown]
